FAERS Safety Report 5925508-9 (Version None)
Quarter: 2008Q4

REPORT INFORMATION
  Report Type: 
  Country: None (occurrence: None)
  Receive Date: 20081021
  Receipt Date: 20081014
  Transmission Date: 20090506
  Serious: Yes (Other)
  Sender: FDA-Public Use
  Company Number: PHEH2008US09196

PATIENT

DRUGS (3)
  1. GLEEVEC [Suspect]
  2. CYTARABINE [Suspect]
  3. METHOTREXATE [Concomitant]

REACTIONS (2)
  - CEREBRAL DISORDER [None]
  - CHEMOTHERAPEUTIC DRUG LEVEL INCREASED [None]
